FAERS Safety Report 11921652 (Version 6)
Quarter: 2016Q2

REPORT INFORMATION
  Report Type: Spontaneous
  Country: RU (occurrence: RU)
  Receive Date: 20160115
  Receipt Date: 20160419
  Transmission Date: 20160815
  Serious: Yes (Life-Threatening, Hospitalization)
  Sender: FDA-Public Use
  Company Number: RU-SA-2016SA005557

PATIENT
  Age: 4 Year
  Sex: Male
  Weight: 13 kg

DRUGS (1)
  1. MYOZYME [Suspect]
     Active Substance: ALGLUCOSIDASE ALFA
     Indication: GLYCOGEN STORAGE DISEASE TYPE II
     Route: 041
     Dates: start: 201409

REACTIONS (6)
  - Brain oedema [Recovering/Resolving]
  - Coma [Recovering/Resolving]
  - Hypomagnesaemia [Recovered/Resolved]
  - Respiratory depression [Recovering/Resolving]
  - Hyponatraemia [Recovered/Resolved]
  - Loss of consciousness [Recovering/Resolving]

NARRATIVE: CASE EVENT DATE: 20160101
